FAERS Safety Report 7197261-5 (Version None)
Quarter: 2010Q4

REPORT INFORMATION
  Report Type: 
  Country: None (occurrence: None)
  Receive Date: 20101226
  Receipt Date: 20101221
  Transmission Date: 20110411
  Serious: Yes (Hospitalization)
  Sender: FDA-Public Use
  Company Number: CH-BAYER-2010-006164

PATIENT
  Age: 83 Year
  Sex: Male

DRUGS (12)
  1. XARELTO [Interacting]
     Indication: PROPHYLAXIS
     Dosage: DAILY DOSE 10 MG
     Route: 048
     Dates: start: 20090423, end: 20090506
  2. ASPIRIN [Interacting]
     Dosage: DAILY DOSE 100 MG
     Route: 048
  3. PAROXETINE HCL [Suspect]
     Indication: BIPOLAR DISORDER
     Dosage: DAILY DOSE 20 MG
     Route: 048
  4. HALDOL [Suspect]
     Indication: RESTLESSNESS
     Dosage: DAILY DOSE 5 GTT
     Route: 048
  5. HALDOL [Suspect]
     Indication: AGITATION
  6. ARICEPT [Concomitant]
     Indication: DEMENTIA ALZHEIMER'S TYPE
     Dosage: 10 MG, QD
     Route: 048
  7. DAFALGAN [Concomitant]
     Indication: PAIN
     Dosage: 1 G, TID
     Route: 048
  8. TRAZODONE HCL [Concomitant]
     Dosage: UNK
     Route: 048
  9. SURMONTIL [Concomitant]
     Indication: SLEEP DISORDER
     Dosage: 15 GTT, PRN
     Route: 048
  10. TRAMAL [Concomitant]
     Indication: PAIN
     Dosage: 20 GTT, PRN
     Route: 048
  11. CALCIUM SANDOZ FORTE D [Concomitant]
     Dosage: UNK
     Route: 048
     Dates: start: 20090425
  12. KALIUM [Concomitant]
     Indication: HYPOKALAEMIA
     Dosage: 1 DF, TID
     Route: 048
     Dates: start: 20090425

REACTIONS (6)
  - GASTROINTESTINAL HAEMORRHAGE [None]
  - HAEMORRHAGIC ANAEMIA [None]
  - HYPOTENSION [None]
  - MELAENA [None]
  - RENAL IMPAIRMENT [None]
  - TACHYCARDIA [None]
